FAERS Safety Report 25559430 (Version 3)
Quarter: 2025Q3

REPORT INFORMATION
  Report Type: Report from Study
  Country: US (occurrence: US)
  Receive Date: 20250715
  Receipt Date: 20250816
  Transmission Date: 20251021
  Serious: Yes (Hospitalization, Other)
  Sender: AIMMUNE
  Company Number: US-AIMMUNE THERAPEUTICS, INC.-2025AIMT00217

PATIENT

DRUGS (24)
  1. VOWST [Suspect]
     Active Substance: DONOR HUMAN STOOL SPORES (ETHANOL TREATED)
     Indication: Clostridium difficile infection
     Dosage: 4 CAPSULES, 1X/DAY
     Route: 048
     Dates: start: 20250224, end: 20250226
  2. VOWST [Suspect]
     Active Substance: DONOR HUMAN STOOL SPORES (ETHANOL TREATED)
     Route: 048
     Dates: start: 20250226, end: 20250226
  3. ZYLOPRIM [Concomitant]
     Active Substance: ALLOPURINOL
     Indication: Product used for unknown indication
     Dosage: 300 MG, 1X/DAY
     Route: 048
  4. ASPIRIN [Concomitant]
     Active Substance: ASPIRIN
     Indication: Product used for unknown indication
     Dosage: 81 MG, 1X/DAY
     Route: 048
  5. PRILOSEC [Concomitant]
     Active Substance: OMEPRAZOLE MAGNESIUM
     Indication: Product used for unknown indication
     Dosage: 40 MG, 1X/DAY EVERY MORNING
     Route: 048
  6. LIPITOR [Concomitant]
     Active Substance: ATORVASTATIN CALCIUM
     Indication: Product used for unknown indication
     Dosage: 40 MG, 1X/DAY AT BEDTIME
     Route: 048
  7. LASIX [Concomitant]
     Active Substance: FUROSEMIDE
     Indication: Product used for unknown indication
     Dosage: 40 MG, 2X/DAY
     Route: 048
  8. FOLIC ACID [Concomitant]
     Active Substance: FOLIC ACID
     Indication: Product used for unknown indication
     Dosage: 1 MG, 1X/DAY
     Route: 048
  9. KLOR-CON M20 [Concomitant]
     Active Substance: POTASSIUM CHLORIDE
     Indication: Product used for unknown indication
     Route: 048
  10. ADCIRCA [Concomitant]
     Active Substance: TADALAFIL
     Indication: Product used for unknown indication
     Dosage: 40 MG, 1X/DAY
     Route: 048
  11. MAGNESIUM OXIDE [Concomitant]
     Active Substance: MAGNESIUM OXIDE
     Indication: Product used for unknown indication
     Route: 048
  12. VITAMIN C [Concomitant]
     Active Substance: ASCORBIC ACID
     Indication: Product used for unknown indication
     Dosage: 1000 MG, 1X/DAY
     Route: 048
  13. OPSUMIT [Concomitant]
     Active Substance: MACITENTAN
     Indication: Product used for unknown indication
  14. CRANBERRY [Concomitant]
     Active Substance: CRANBERRY
     Indication: Product used for unknown indication
     Dosage: 400 MG, 1X/DAY
     Route: 048
  15. COREG [Concomitant]
     Active Substance: CARVEDILOL
     Indication: Product used for unknown indication
     Dosage: 3.125 MG, 2X/DAY WITH MEALS
     Route: 048
  16. NORVASC [Concomitant]
     Active Substance: AMLODIPINE BESYLATE
     Indication: Product used for unknown indication
     Dosage: 10 MG, 1X/DAY
     Route: 048
  17. BIOFREEZE PAIN RELIEVING [Concomitant]
     Active Substance: MENTHOL
     Indication: Pain
     Route: 061
  18. PHILLIPS COLON HEALTH [Concomitant]
     Indication: Product used for unknown indication
     Route: 048
  19. CALCIUM WITH VITAMIN D 3 [Concomitant]
     Indication: Product used for unknown indication
     Route: 048
  20. LACTASE [Concomitant]
     Active Substance: LACTASE
     Indication: Product used for unknown indication
     Route: 048
  21. SIMPLY SALINE [Concomitant]
     Indication: Product used for unknown indication
     Route: 045
  22. TUMS [Concomitant]
     Active Substance: CALCIUM CARBONATE
     Indication: Product used for unknown indication
     Dosage: 1000 MG, 4X/DAY AS NEEDED
     Route: 048
  23. CLARITIN [Concomitant]
     Active Substance: LORATADINE
     Indication: Product used for unknown indication
     Dosage: 10 MG, 1X/DAY
     Route: 048
  24. ARANESP [Concomitant]
     Active Substance: DARBEPOETIN ALFA
     Indication: Product used for unknown indication
     Route: 058

REACTIONS (11)
  - Clostridium difficile colitis [Not Recovered/Not Resolved]
  - Acute kidney injury [Unknown]
  - Hypotension [Recovering/Resolving]
  - Diarrhoea [Not Recovered/Not Resolved]
  - Hypovolaemia [Unknown]
  - Clostridium test positive [Unknown]
  - Blood creatinine increased [Unknown]
  - Oedema peripheral [Unknown]
  - Dysphagia [Unknown]
  - Ill-defined disorder [Unknown]
  - Treatment failure [Unknown]

NARRATIVE: CASE EVENT DATE: 20250226
